FAERS Safety Report 22152216 (Version 1)
Quarter: 2023Q1

REPORT INFORMATION
  Report Type: Spontaneous
  Country: US (occurrence: None)
  Receive Date: 20230329
  Receipt Date: 20230329
  Transmission Date: 20230417
  Serious: No
  Sender: FDA-Public Use
  Company Number: 2023A055515

PATIENT
  Age: 977 Month
  Sex: Male
  Weight: 131.1 kg

DRUGS (1)
  1. LOKELMA [Suspect]
     Active Substance: SODIUM ZIRCONIUM CYCLOSILICATE
     Route: 048
     Dates: start: 202303

REACTIONS (2)
  - Blood glucose decreased [Unknown]
  - Drug therapy [Unknown]

NARRATIVE: CASE EVENT DATE: 20230301
